FAERS Safety Report 6337286-2 (Version None)
Quarter: 2009Q3

REPORT INFORMATION
  Report Type: 
  Country: None (occurrence: None)
  Receive Date: 20090901
  Receipt Date: 20090901
  Transmission Date: 20100115
  Serious: Yes (Other)
  Sender: FDA-Public Use
  Company Number: None

PATIENT
  Age: 47 Year
  Sex: Female
  Weight: 85.7298 kg

DRUGS (8)
  1. AMBIEN [Suspect]
     Indication: DEPRESSION
     Dosage: 10 MG 1/DAY ORAL
     Route: 048
     Dates: start: 20090827
  2. AMBIEN [Suspect]
     Indication: INSOMNIA
     Dosage: 10 MG 1/DAY ORAL
     Route: 048
     Dates: start: 20090827
  3. AMBIEN [Suspect]
     Indication: DEPRESSION
     Dosage: 10 MG 1/DAY ORAL
     Route: 048
     Dates: start: 20090829
  4. AMBIEN [Suspect]
     Indication: INSOMNIA
     Dosage: 10 MG 1/DAY ORAL
     Route: 048
     Dates: start: 20090829
  5. AMBIEN [Suspect]
     Indication: DEPRESSION
     Dosage: 10 MG 1/DAY ORAL
     Route: 048
     Dates: start: 20090830
  6. AMBIEN [Suspect]
     Indication: INSOMNIA
     Dosage: 10 MG 1/DAY ORAL
     Route: 048
     Dates: start: 20090830
  7. EFFEXOR XR [Concomitant]
  8. ABILIFY [Concomitant]

REACTIONS (2)
  - ABNORMAL BEHAVIOUR [None]
  - AMNESIA [None]
